FAERS Safety Report 8657973 (Version 2)
Quarter: 2012Q4

REPORT INFORMATION
  Report Type: 
  Country: US (occurrence: US)
  Receive Date: 20120710
  Receipt Date: 20120906
  Transmission Date: 20130627
  Serious: Yes (Death, Other)
  Sender: FDA-Public Use
  Company Number: US-ELI_LILLY_AND_COMPANY-US201207000762

PATIENT
  Age: 46 Year
  Sex: Female
  Weight: 79.37 kg

DRUGS (3)
  1. CYMBALTA [Suspect]
     Indication: MAJOR DEPRESSION
     Dosage: 30 mg, qd
     Route: 048
     Dates: start: 20110922
  2. ZYPREXA [Suspect]
     Dosage: 5 mg, each evening
     Route: 048
  3. DEPAKOTE ER [Concomitant]
     Dosage: 500 mg, each evening
     Route: 048
     Dates: start: 20120607

REACTIONS (1)
  - Myocardial infarction [Fatal]
